FAERS Safety Report 16027536 (Version 1)
Quarter: 2019Q1

REPORT INFORMATION
  Report Type: Other
  Country: DK (occurrence: DK)
  Receive Date: 20190304
  Receipt Date: 20190304
  Transmission Date: 20190418
  Serious: Yes (Other)
  Sender: FDA-Public Use
  Company Number: DK-APOTEX-2019AP008608

PATIENT

DRUGS (6)
  1. ENOXAPARIN [Suspect]
     Active Substance: ENOXAPARIN
     Dosage: UNK
     Route: 042
  2. RT-PA [Suspect]
     Active Substance: ALTEPLASE
     Indication: ACUTE MYOCARDIAL INFARCTION
     Dosage: 100MG
     Route: 042
  3. ENOXAPARIN [Suspect]
     Active Substance: ENOXAPARIN
     Indication: ANTICOAGULANT THERAPY
     Dosage: 30MG
     Route: 042
  4. CLOPIDOGREL [Suspect]
     Active Substance: CLOPIDOGREL BISULFATE
     Indication: ANTIPLATELET THERAPY
     Dosage: 300 MG IF BODY MASS LESS 80 KG OR 450 MG IF BODY MASS MORE THAN 80 KG
     Route: 065
  5. ACETYLSALICYLIC ACID [Suspect]
     Active Substance: ASPIRIN
     Indication: ANTIPLATELET THERAPY
     Dosage: 300 MG IF NO PRIOR ASPIRIN USE OR 100 MG IF PRIOR ASPIRIN USE ON A REGULAR BASIS
     Route: 065
  6. ENOXAPARIN [Suspect]
     Active Substance: ENOXAPARIN
     Dosage: 2 MG/KG BODY WEIGHT UNTIL A COMPLETED ANGIOGRAM OR PCI AND FOR AT LEAST 24 HOURS FOLLOWING THE PROCE
     Route: 065

REACTIONS (2)
  - Coronary artery bypass [Unknown]
  - Skin haemorrhage [Unknown]
